FAERS Safety Report 7901766-6 (Version None)
Quarter: 2011Q4

REPORT INFORMATION
  Report Type: 
  Country: None (occurrence: None)
  Receive Date: 20111108
  Receipt Date: 20111024
  Transmission Date: 20120403
  Serious: Yes (Hospitalization)
  Sender: FDA-Public Use
  Company Number: PHHO2010US10677

PATIENT
  Sex: Female

DRUGS (19)
  1. CYCLOSPORINE [Suspect]
     Indication: RENAL TRANSPLANT
     Dosage: 300 MG, DAILY
     Route: 048
     Dates: start: 20070120
  2. LISINOPRIL [Concomitant]
  3. M.V.I. [Concomitant]
  4. PEPCID [Concomitant]
  5. CYCLOSPORINE [Suspect]
     Dosage: 275 MG, DAILY
     Route: 048
  6. PREDNISONE [Suspect]
     Indication: RENAL TRANSPLANT
     Dosage: 5 MG, QD
     Route: 048
     Dates: start: 20070326
  7. OXYCONTIN [Concomitant]
  8. NITROGLYCERIN [Concomitant]
  9. HYDROCODONE BITARTRATE [Concomitant]
  10. PAMELOR [Concomitant]
  11. GABAPENTIN [Concomitant]
     Dosage: UNK
     Dates: start: 20091211
  12. XANAX [Concomitant]
  13. OXYCODONE HCL [Concomitant]
  14. METOPROLOL [Concomitant]
  15. MYCOPHENOLATE MOFETIL (CELLCEPT) [Suspect]
     Indication: RENAL TRANSPLANT
     Dosage: 3 G, DAILY
     Route: 048
     Dates: start: 20070120
  16. PRAVASTATIN [Concomitant]
  17. NORTRIPTYLINE HCL [Concomitant]
  18. COLACE [Concomitant]
  19. NEURONTIN [Concomitant]

REACTIONS (16)
  - BETA HAEMOLYTIC STREPTOCOCCAL INFECTION [None]
  - KIDNEY TRANSPLANT REJECTION [None]
  - PYELONEPHRITIS [None]
  - PERINEAL PAIN [None]
  - RIGHT VENTRICULAR SYSTOLIC PRESSURE INCREASED [None]
  - MITRAL VALVE INCOMPETENCE [None]
  - NAUSEA [None]
  - ABDOMINAL PAIN [None]
  - FATIGUE [None]
  - LEFT VENTRICULAR HYPERTROPHY [None]
  - DYSPNOEA [None]
  - ELECTROCARDIOGRAM T WAVE ABNORMAL [None]
  - CHEST DISCOMFORT [None]
  - HAEMATURIA [None]
  - CHEST PAIN [None]
  - SINUS TACHYCARDIA [None]
